FAERS Safety Report 5393467-6 (Version None)
Quarter: 2007Q3

REPORT INFORMATION
  Report Type: 
  Country: None (occurrence: None)
  Receive Date: 20070723
  Receipt Date: 20060609
  Transmission Date: 20080115
  Serious: No
  Sender: FDA-Public Use
  Company Number: A0608501A

PATIENT
  Sex: Male

DRUGS (9)
  1. AVANDIA [Suspect]
     Dosage: 4MG TWICE PER DAY
     Route: 048
     Dates: start: 20040101, end: 20050101
  2. PRANDIN [Concomitant]
  3. LIPITOR [Concomitant]
  4. FLOMAX [Concomitant]
  5. NEXIUM [Concomitant]
  6. CELEBREX [Concomitant]
  7. ANAPRIL [Concomitant]
  8. UNSPECIFIED MEDICATION [Concomitant]
  9. METFORMIN HCL [Concomitant]

REACTIONS (1)
  - DRUG INEFFECTIVE [None]
